FAERS Safety Report 10951035 (Version 1)
Quarter: 2015Q1

REPORT INFORMATION
  Report Type: Spontaneous
  Country: US (occurrence: None)
  Receive Date: 20150226
  Receipt Date: 20150226
  Transmission Date: 20150721
  Serious: No
  Sender: FDA-Public Use
  Company Number: TAP2005Q00255

PATIENT
  Age: 59 Year
  Sex: Female

DRUGS (4)
  1. RELIV POWDER [Suspect]
     Active Substance: DIETARY SUPPLEMENT
     Indication: NUTRITIONAL SUPPLEMENTATION
  2. SYNTHROID [Suspect]
     Active Substance: LEVOTHYROXINE SODIUM
     Indication: HYPOTHYROIDISM
     Route: 048
  3. OCUVITE [Suspect]
     Active Substance: VITAMINS
     Indication: VITAMIN SUPPLEMENTATION
     Route: 048
     Dates: end: 200405
  4. PREVACID [Suspect]
     Active Substance: LANSOPRAZOLE
     Indication: GASTROOESOPHAGEAL REFLUX DISEASE
     Route: 048
     Dates: start: 200303

REACTIONS (3)
  - Hepatitis [None]
  - Hepatic enzyme increased [None]
  - Hepatic necrosis [None]

NARRATIVE: CASE EVENT DATE: 200501
